FAERS Safety Report 7878664-X (Version None)
Quarter: 2011Q4

REPORT INFORMATION
  Report Type: 
  Country: None (occurrence: None)
  Receive Date: 20111018
  Receipt Date: 20110505
  Transmission Date: 20120403
  Serious: Yes (Other)
  Sender: FDA-Public Use
  Company Number: 2011P1006329

PATIENT
  Age: 50 Year
  Sex: Female
  Weight: 64.4108 kg

DRUGS (29)
  1. ALBUTEROL SULFATE [Concomitant]
  2. MULTIVITAMIN WITH IRON [Concomitant]
  3. BYETTA [Concomitant]
  4. PROMETHAZINE [Concomitant]
  5. VYTORIN [Concomitant]
  6. FISH OIL [Concomitant]
  7. MILK THISTLE [Concomitant]
  8. FORTEO [Concomitant]
  9. CALCIUM [Concomitant]
  10. CETIRIZINE [Suspect]
     Indication: HYPERSENSITIVITY
     Dosage: 2 TABLETS;4-6 TIMES A DAY;PO
     Route: 048
     Dates: start: 20030101
  11. CITALOPRAM HYDROBROMIDE [Concomitant]
  12. HYDROXYZINE [Concomitant]
  13. VICODIN [Concomitant]
  14. PROVENTIL GENTLEHALER [Concomitant]
  15. PRILOSEC [Concomitant]
  16. ASPIRIN [Concomitant]
  17. FUROSEMIDE [Concomitant]
  18. FENTANYL-75 [Suspect]
     Indication: PAIN
     Dosage: 1 PATCH;Q3D;TDER
     Route: 062
     Dates: start: 20091101
  19. ACTOS [Concomitant]
  20. RIBOFLAVIN [Concomitant]
  21. GEODON [Concomitant]
  22. NITRO TABLETS [Concomitant]
  23. TYLENOL W/ CODEINE NO. 4 [Concomitant]
  24. GLUCOVANCE [Concomitant]
  25. OXYBUTYNIN [Concomitant]
  26. METOPROLOL TARTRATE [Concomitant]
  27. AMBIEN [Concomitant]
  28. VITAMIN B-12 [Concomitant]
  29. DICLOFENAC SODIUM [Concomitant]

REACTIONS (4)
  - BRONCHITIS [None]
  - DRUG SCREEN POSITIVE [None]
  - CYSTITIS [None]
  - DYSPNOEA [None]
